FAERS Safety Report 13227901 (Version 1)
Quarter: 2017Q1

REPORT INFORMATION
  Report Type: Spontaneous
  Country: BE (occurrence: BE)
  Receive Date: 20170213
  Receipt Date: 20170213
  Transmission Date: 20170428
  Serious: Yes (Disabling, Congenital Anomaly)
  Sender: FDA-Public Use
  Company Number: BE-ABBVIE-17P-013-1834925-00

PATIENT
  Sex: Male

DRUGS (1)
  1. DEPAKINE [Suspect]
     Active Substance: VALPROATE SODIUM
     Indication: PRODUCT USED FOR UNKNOWN INDICATION
     Route: 064

REACTIONS (9)
  - Foetal exposure during pregnancy [Unknown]
  - Daydreaming [Unknown]
  - Pyloric stenosis [Recovered/Resolved]
  - Nystagmus [Unknown]
  - Autism [Unknown]
  - Disturbance in attention [Unknown]
  - Agitation [Unknown]
  - Ear infection [Unknown]
  - Muscle twitching [Unknown]
